FAERS Safety Report 7584285-9 (Version None)
Quarter: 2011Q2

REPORT INFORMATION
  Report Type: 
  Country: None (occurrence: None)
  Receive Date: 20110630
  Receipt Date: 20110616
  Transmission Date: 20111010
  Serious: Yes (Other)
  Sender: FDA-Public Use
  Company Number: PHHY2011CA56165

PATIENT

DRUGS (6)
  1. CYCLOPHOSPHAMIDE [Suspect]
     Dosage: UNK
  2. DEXAMETHASONE [Suspect]
  3. THALIDOMIDE [Suspect]
     Dosage: UNK
  4. MELPHALAN HYDROCHLORIDE [Suspect]
     Dosage: 200 MG/M2, UNK
  5. NEUPOGEN [Suspect]
  6. PAMIDRONATE DISODIUM [Suspect]
     Indication: MULTIPLE MYELOMA

REACTIONS (10)
  - VIITH NERVE PARALYSIS [None]
  - VIIITH NERVE LESION [None]
  - VOMITING [None]
  - RADIATION NECROSIS [None]
  - IIIRD NERVE PARALYSIS [None]
  - HYPOACUSIS [None]
  - DEPRESSED MOOD [None]
  - LETHARGY [None]
  - FATIGUE [None]
  - NAUSEA [None]
